FAERS Safety Report 19864922 (Version 2)
Quarter: 2021Q3

REPORT INFORMATION
  Report Type: Spontaneous
  Country: CN (occurrence: CN)
  Receive Date: 20210921
  Receipt Date: 20210928
  Transmission Date: 20211014
  Serious: Yes (Other)
  Sender: FDA-Public Use
  Company Number: CN-NEBO-PC007390

PATIENT
  Age: 41 Year
  Sex: Female
  Weight: 70 kg

DRUGS (1)
  1. MONOFER [Suspect]
     Active Substance: IRON ISOMALTOSIDE 1000
     Indication: IRON DEFICIENCY ANAEMIA
     Route: 042
     Dates: start: 20210828, end: 20210828

REACTIONS (2)
  - Back pain [Recovered/Resolved]
  - Hypersensitivity [Recovering/Resolving]

NARRATIVE: CASE EVENT DATE: 20210828
